FAERS Safety Report 5718048-3 (Version None)
Quarter: 2008Q2

REPORT INFORMATION
  Report Type: 
  Country: None (occurrence: None)
  Receive Date: 20080425
  Receipt Date: 20080421
  Transmission Date: 20081010
  Serious: Yes (Hospitalization)
  Sender: FDA-Public Use
  Company Number: JP-ASTRAZENECA-2008AP02903

PATIENT
  Age: 40 Year
  Sex: Female

DRUGS (3)
  1. TENORMIN [Suspect]
     Route: 048
     Dates: start: 20080416, end: 20080416
  2. NORVASC [Suspect]
     Dosage: DOSE UNKNOWN, TOOK THE DOSAGE FOR TWO WEEKS AT ONCE
     Route: 048
     Dates: start: 20080416, end: 20080416
  3. DIOVAN [Suspect]
     Dosage: DOSE UNKNOWN, TOOK THE DOSAGE FOR TWO WEEKS AT ONCE
     Route: 048
     Dates: start: 20080416, end: 20080416

REACTIONS (1)
  - INTENTIONAL OVERDOSE [None]
